FAERS Safety Report 23832259 (Version 1)
Quarter: 2024Q2

REPORT INFORMATION
  Report Type: Spontaneous
  Country: CN (occurrence: CN)
  Receive Date: 20240508
  Receipt Date: 20240508
  Transmission Date: 20240716
  Serious: Yes (Life-Threatening, Hospitalization, Disabling, Other)
  Sender: FDA-Public Use
  Company Number: CN-002147023-NVSC2024CN097032

PATIENT
  Age: 81 Year
  Sex: Female

DRUGS (3)
  1. DICLOFENAC SODIUM [Suspect]
     Active Substance: DICLOFENAC\DICLOFENAC SODIUM
     Indication: Back pain
     Dosage: 50 MG, TID
     Route: 048
     Dates: start: 20240319, end: 20240325
  2. DICLOFENAC SODIUM [Suspect]
     Active Substance: DICLOFENAC\DICLOFENAC SODIUM
     Indication: Antiplatelet therapy
  3. ASPIRIN [Suspect]
     Active Substance: ASPIRIN
     Indication: Prophylaxis
     Dosage: 0.1 G, QD (ENTERIC-COATED TABLETS
     Route: 048
     Dates: start: 20240319, end: 20240325

REACTIONS (12)
  - Melaena [Recovering/Resolving]
  - Small intestinal ulcer haemorrhage [Recovering/Resolving]
  - Shock haemorrhagic [Recovering/Resolving]
  - Haematochezia [Recovering/Resolving]
  - Thirst [Recovering/Resolving]
  - Gastrointestinal haemorrhage [Recovering/Resolving]
  - Pallor [Recovering/Resolving]
  - Cold sweat [Recovering/Resolving]
  - Anaemia [Recovering/Resolving]
  - Conjunctival pallor [Recovering/Resolving]
  - Abdominal distension [Recovering/Resolving]
  - Nausea [Recovering/Resolving]
